FAERS Safety Report 14322664 (Version 3)
Quarter: 2018Q4

REPORT INFORMATION
  Report Type: Spontaneous
  Country: US (occurrence: US)
  Receive Date: 20171225
  Receipt Date: 20181219
  Transmission Date: 20190204
  Serious: Yes (Other)
  Sender: FDA-Public Use
  Company Number: US-AMGEN-USASP2017188846

PATIENT
  Age: 74 Year
  Sex: Female

DRUGS (4)
  1. ENBREL [Suspect]
     Active Substance: ETANERCEPT
     Indication: RHEUMATOID ARTHRITIS
     Dosage: 50 MG, QWK
     Route: 058
  2. ENBREL [Suspect]
     Active Substance: ETANERCEPT
     Dosage: 50 MG, QWK
     Route: 058
  3. ENBREL [Suspect]
     Active Substance: ETANERCEPT
     Indication: PSORIASIS
     Dosage: 50 MG, QWK
     Route: 058
     Dates: start: 2016
  4. CLARITIN [Concomitant]
     Active Substance: LORATADINE
     Dosage: UNK UNK, AS NECESSARY

REACTIONS (10)
  - Wrist surgery [Unknown]
  - Pulmonary congestion [Unknown]
  - Rash [Unknown]
  - Carpal tunnel syndrome [Unknown]
  - Hypoaesthesia [Not Recovered/Not Resolved]
  - Incorrect dose administered by device [Unknown]
  - Arthralgia [Unknown]
  - Stress [Unknown]
  - Device issue [Unknown]
  - Hyperhidrosis [Unknown]

NARRATIVE: CASE EVENT DATE: 201712
